FAERS Safety Report 8401450 (Version 3)
Quarter: 2013Q1

REPORT INFORMATION
  Report Type: Report from Study
  Country: JP (occurrence: JP)
  Receive Date: 20120210
  Receipt Date: 20130102
  Transmission Date: 20140127
  Serious: Yes (Other)
  Sender: FDA-Public Use
  Company Number: PHHY2012JP009011

PATIENT
  Age: 68 Year
  Sex: Female

DRUGS (16)
  1. LEPONEX / CLOZARIL [Suspect]
     Indication: SCHIZOPHRENIA, DISORGANISED TYPE
     Dosage: 12.5 MG, DAILY
     Route: 048
     Dates: start: 20110901, end: 20110906
  2. LEPONEX / CLOZARIL [Suspect]
     Dosage: 25 MG, DAILY
     Route: 048
     Dates: start: 20110907, end: 20110913
  3. LEPONEX / CLOZARIL [Suspect]
     Dosage: 50 MG, DAILY
     Route: 048
     Dates: start: 20110914, end: 20111025
  4. LEPONEX / CLOZARIL [Suspect]
     Dosage: 25 MG, DAILY
     Dates: start: 20111026, end: 20111101
  5. LEPONEX / CLOZARIL [Suspect]
     Dosage: 12.5 MG, DAILY
     Route: 048
     Dates: start: 20111109, end: 20111115
  6. LEPONEX / CLOZARIL [Suspect]
     Dosage: 25 MG, DAILY
     Route: 048
     Dates: start: 20111116, end: 20111206
  7. LEPONEX / CLOZARIL [Suspect]
     Dosage: 50 MG, DAILY
     Route: 048
     Dates: start: 20111207, end: 20111213
  8. LEPONEX / CLOZARIL [Suspect]
     Dosage: 75 MG, DAILY
     Route: 048
     Dates: start: 20111214, end: 20111220
  9. LEPONEX / CLOZARIL [Suspect]
     Dosage: 100 MG, DAILY
     Route: 048
     Dates: start: 20111221, end: 20111221
  10. LEPONEX / CLOZARIL [Suspect]
     Dosage: 12.5 MG, DAILY
     Route: 048
     Dates: start: 20120111, end: 20120201
  11. FLUNITRAZEPAM [Concomitant]
     Indication: SCHIZOPHRENIA, DISORGANISED TYPE
     Dosage: 2 MG, UNK
     Route: 048
     Dates: start: 20111129
  12. GASMOTIN [Concomitant]
     Indication: PROPHYLAXIS
     Dosage: 30 MG, UNK
     Route: 048
     Dates: start: 20111202
  13. PANTOSIN [Concomitant]
     Dosage: 600 MG, UNK
     Route: 048
     Dates: start: 20111202
  14. MAGMITT [Concomitant]
     Indication: PROPHYLAXIS
     Dosage: 1500 MG, UNK
     Route: 048
     Dates: start: 20111202
  15. LIMAS [Concomitant]
     Indication: SCHIZOPHRENIA, DISORGANISED TYPE
     Dosage: 400 MG, UNK
     Route: 048
     Dates: start: 20110915, end: 20111129
  16. EURODIN [Concomitant]
     Indication: SCHIZOPHRENIA, DISORGANISED TYPE
     Dosage: 2 MG, UNK
     Route: 048
     Dates: start: 20111230

REACTIONS (3)
  - Blood pressure systolic decreased [Unknown]
  - Sedation [Recovered/Resolved]
  - Haemoglobin decreased [Unknown]
